FAERS Safety Report 21967450 (Version 1)
Quarter: 2023Q1

REPORT INFORMATION
  Report Type: Spontaneous
  Country: US (occurrence: None)
  Receive Date: 20230206
  Receipt Date: 20230206
  Transmission Date: 20230417
  Serious: Yes (Other)
  Sender: FDA-Public Use
  Company Number: None

PATIENT
  Age: 64 Year
  Sex: Male

DRUGS (7)
  1. NANDROLONE DECANOATE\TESTOSTERONE CYPIONATE\TESTOSTERONE ENANTHATE [Suspect]
     Active Substance: NANDROLONE DECANOATE\TESTOSTERONE CYPIONATE\TESTOSTERONE ENANTHATE
     Indication: Hypogonadism
     Dosage: 0.35 ML EVERY 3.5 DAYS SUBCUTANEOUS?
     Route: 058
     Dates: start: 20220602
  2. LYRICA [Concomitant]
     Active Substance: PREGABALIN
  3. CYCLOBENZAPRINE [Concomitant]
     Active Substance: CYCLOBENZAPRINE
  4. SUBOXONE [Concomitant]
     Active Substance: BUPRENORPHINE HYDROCHLORIDE\NALOXONE HYDROCHLORIDE
  5. Valsartan 160 mg BID [Concomitant]
  6. ROSUVASTATIN [Concomitant]
     Active Substance: ROSUVASTATIN
  7. ANASTROZOLE [Concomitant]
     Active Substance: ANASTROZOLE

REACTIONS (1)
  - Anger [None]

NARRATIVE: CASE EVENT DATE: 20230119
